FAERS Safety Report 13896145 (Version 1)
Quarter: 2017Q3

REPORT INFORMATION
  Report Type: Spontaneous
  Country: US (occurrence: None)
  Receive Date: 20170816
  Receipt Date: 20170816
  Transmission Date: 20171127
  Serious: Yes (Other)
  Sender: FDA-Public Use
  Company Number: None

PATIENT
  Age: 75 Year
  Sex: Female
  Weight: 68.04 kg

DRUGS (3)
  1. TRIAMTERENE-HCTZ [Concomitant]
     Active Substance: HYDROCHLOROTHIAZIDE\TRIAMTERENE
  2. ATENOLOL. [Concomitant]
     Active Substance: ATENOLOL
  3. PROLIA [Suspect]
     Active Substance: DENOSUMAB
     Indication: OSTEOPENIA
     Dosage: INJECTION  EVERY  6 MOS.;?ONLY TOOK ONCE
     Dates: start: 20161027

REACTIONS (2)
  - Stress fracture [None]
  - Foot fracture [None]

NARRATIVE: CASE EVENT DATE: 20170406
